FAERS Safety Report 23957965 (Version 1)
Quarter: 2024Q2

REPORT INFORMATION
  Report Type: Spontaneous
  Country: PT (occurrence: PT)
  Receive Date: 20240610
  Receipt Date: 20240610
  Transmission Date: 20240716
  Serious: Yes (Death)
  Sender: FDA-Public Use
  Company Number: PT-002147023-NVSC2020PT085887

PATIENT
  Age: 30 Year
  Sex: Female

DRUGS (2)
  1. EVEROLIMUS [Suspect]
     Active Substance: EVEROLIMUS
     Indication: Renal cancer
     Dosage: UNK
     Route: 065
  2. EVEROLIMUS [Suspect]
     Active Substance: EVEROLIMUS
     Indication: Metastases to the mediastinum

REACTIONS (3)
  - Metastasis [Fatal]
  - Malignant neoplasm progression [Fatal]
  - Renal cancer [Fatal]
